FAERS Safety Report 16385402 (Version 1)
Quarter: 2019Q2

REPORT INFORMATION
  Report Type: Spontaneous
  Country: US (occurrence: US)
  Receive Date: 20190603
  Receipt Date: 20190603
  Transmission Date: 20190711
  Serious: Yes (Other)
  Sender: FDA-Public Use
  Company Number: US-BAUSCH-BL-2019-015263

PATIENT
  Age: 71 Year
  Sex: Female

DRUGS (2)
  1. OCEAN SALINE NASAL SPRAY [Suspect]
     Active Substance: SODIUM CHLORIDE
     Indication: SINUSITIS
     Dosage: SOMETIME IN THE FALL
     Route: 045
     Dates: start: 2018
  2. OCEAN SALINE NASAL SPRAY [Suspect]
     Active Substance: SODIUM CHLORIDE
     Dosage: ONCE SOMETIME LAST WEEK.
     Route: 045
     Dates: start: 201905, end: 201905

REACTIONS (3)
  - Hip surgery [Unknown]
  - Ear infection [Unknown]
  - Recalled product administered [Unknown]

NARRATIVE: CASE EVENT DATE: 20190206
